FAERS Safety Report 11498102 (Version 2)
Quarter: 2015Q4

REPORT INFORMATION
  Report Type: Report from Study
  Country: US (occurrence: US)
  Receive Date: 20150911
  Receipt Date: 20151002
  Transmission Date: 20160304
  Serious: Yes (Other)
  Sender: FDA-Public Use
  Company Number: US-CORCEPT THERAPEUTICS INC.-US-2015CRT000284

PATIENT

DRUGS (6)
  1. KORLYM [Suspect]
     Active Substance: MIFEPRISTONE
     Dosage: 2 DF, QD
     Route: 048
     Dates: start: 20150211
  2. KORLYM [Suspect]
     Active Substance: MIFEPRISTONE
     Dosage: 1 TABLET QD ALTERNATING WITH 2 TABLETS QD
     Route: 048
     Dates: start: 20141017, end: 20150210
  3. DRUGS USED IN DIABETES [Concomitant]
     Active Substance: UNSPECIFIED INGREDIENT
     Indication: DIABETES MELLITUS
     Dosage: UNK, PILL IN THE MORNING
  4. LANTUS [Concomitant]
     Active Substance: INSULIN GLARGINE
     Indication: PRODUCT USED FOR UNKNOWN INDICATION
     Dosage: UNK
  5. INSULIN [Concomitant]
     Active Substance: INSULIN NOS
     Indication: DIABETES MELLITUS
     Dosage: UNK
  6. KORLYM [Suspect]
     Active Substance: MIFEPRISTONE
     Indication: CUSHING^S SYNDROME
     Dosage: 1 DF, QD
     Route: 048
     Dates: start: 20140722, end: 20141016

REACTIONS (6)
  - Gynaecomastia [Recovering/Resolving]
  - Confusional state [Unknown]
  - Dizziness postural [Not Recovered/Not Resolved]
  - Breast mass [Recovering/Resolving]
  - Breast inflammation [Recovering/Resolving]
  - Dizziness [Unknown]

NARRATIVE: CASE EVENT DATE: 2014
